FAERS Safety Report 5624571-2 (Version None)
Quarter: 2008Q1

REPORT INFORMATION
  Report Type: 
  Country: None (occurrence: None)
  Receive Date: 20080213
  Receipt Date: 20080211
  Transmission Date: 20080703
  Serious: Yes (Hospitalization)
  Sender: FDA-Public Use
  Company Number: NZ-ASTRAZENECA-2008AP00911

PATIENT
  Age: 21930 Day
  Sex: Female

DRUGS (5)
  1. OMEPRAZOLE [Suspect]
     Indication: ABDOMINAL DISCOMFORT
     Route: 048
     Dates: start: 20060101, end: 20070123
  2. CILAZAPRIL [Concomitant]
     Dosage: LONG TERM
     Route: 048
     Dates: end: 20070123
  3. LEVOTHYROXINE SODIUM [Concomitant]
     Dosage: LONG TERM
     Route: 048
  4. DOTHIEPIN HYDROCHLORIDE [Concomitant]
     Dosage: LONG TERM
     Route: 048
  5. POTASSIUM CHLORIDE [Concomitant]
     Dosage: LONG TERM
     Route: 048
     Dates: end: 20070123

REACTIONS (3)
  - EOSINOPHILIA [None]
  - NEPHRITIS INTERSTITIAL [None]
  - RENAL FAILURE ACUTE [None]
